FAERS Safety Report 4383055-2 (Version None)
Quarter: 2004Q2

REPORT INFORMATION
  Report Type: 
  Country: None (occurrence: None)
  Receive Date: 20040614
  Receipt Date: 20040412
  Transmission Date: 20050107
  Serious: No
  Sender: FDA-Public Use
  Company Number: 2004208628US

PATIENT
  Age: 71 Year
  Sex: Female

DRUGS (1)
  1. ZYVOX [Suspect]
     Indication: URINARY TRACT INFECTION
     Dosage: 600 MG, BID, IV
     Route: 042

REACTIONS (1)
  - CHROMATURIA [None]
